FAERS Safety Report 12959310 (Version 4)
Quarter: 2018Q1

REPORT INFORMATION
  Report Type: Spontaneous
  Country: NL (occurrence: NL)
  Receive Date: 20161121
  Receipt Date: 20180303
  Transmission Date: 20180508
  Serious: Yes (Hospitalization, Other)
  Sender: FDA-Public Use
  Company Number: NL-AUROBINDO-AUR-APL-2016-14369

PATIENT
  Age: 53 Year
  Sex: Male

DRUGS (4)
  1. LEVETIRACETAM 750MG [Suspect]
     Active Substance: LEVETIRACETAM
     Dosage: 1000 MG, TWO TIMES A DAY
     Route: 065
  2. LEVETIRACETAM 750MG [Suspect]
     Active Substance: LEVETIRACETAM
     Indication: SEIZURE
     Dosage: 750 MG, TWO TIMES A DAY
     Route: 065
  3. PREDNISONE. [Concomitant]
     Active Substance: PREDNISONE
     Dosage: UNK, WAS TAPERED RAPIDLY WITHIN 4 DAYS
  4. PREDNISONE. [Concomitant]
     Active Substance: PREDNISONE
     Indication: PRODUCT USED FOR UNKNOWN INDICATION
     Dosage: 4 MG, FOUR TIMES/DAY

REACTIONS (7)
  - Fall [Recovered/Resolved]
  - Aggression [Recovered/Resolved]
  - Mental status changes [Recovered/Resolved]
  - Psychiatric symptom [Recovered/Resolved]
  - Loss of consciousness [Recovered/Resolved]
  - Oligodendroglioma [Recovered/Resolved]
  - Abnormal behaviour [Recovered/Resolved]
